FAERS Safety Report 7470792-6 (Version None)
Quarter: 2011Q2

REPORT INFORMATION
  Report Type: 
  Country: None (occurrence: None)
  Receive Date: 20110426
  Receipt Date: 20110419
  Transmission Date: 20111010
  Serious: Yes (Disabling)
  Sender: FDA-Public Use
  Company Number: QR46037-01

PATIENT
  Age: 86 Year
  Sex: Female

DRUGS (15)
  1. BIO PRODUCTS LABORATORY LIMITED [Suspect]
     Indication: BLOOD IMMUNOGLOBULIN A DECREASED
     Dates: start: 20101118
  2. BIO PRODUCTS LABORATORY LIMITED [Suspect]
     Indication: BLOOD IMMUNOGLOBULIN G DECREASED
     Dates: start: 20101118
  3. PRAVASTATIN [Concomitant]
  4. CODEINE PHOSPHATE [Concomitant]
  5. LOPERAMIDE [Concomitant]
  6. CALCICHEW [Concomitant]
  7. LEVEMIR [Concomitant]
  8. BUSCOPAN [Concomitant]
  9. MORPHINE [Concomitant]
  10. CREON TABLET [Concomitant]
  11. GAMMAPLEX [Suspect]
     Indication: CHRONIC LYMPHOCYTIC LEUKAEMIA
     Dosage: 25G IV
     Route: 042
     Dates: start: 20101021
  12. PENICILLIN [Concomitant]
  13. LACTULOSE [Concomitant]
  14. NOVORAPID [Concomitant]
  15. PEPPERMINT TABLETS [Concomitant]

REACTIONS (3)
  - BACK PAIN [None]
  - FATIGUE [None]
  - ACTIVITIES OF DAILY LIVING IMPAIRED [None]
